FAERS Safety Report 18580963 (Version 8)
Quarter: 2024Q1

REPORT INFORMATION
  Report Type: Report from Study
  Country: US (occurrence: US)
  Receive Date: 20201204
  Receipt Date: 20240311
  Transmission Date: 20240410
  Serious: Yes (Other)
  Sender: FDA-Public Use
  Company Number: US-TAKEDA-2020TUS054148

PATIENT
  Age: 57 Year
  Sex: Female

DRUGS (3)
  1. PARATHYROID HORMONE [Suspect]
     Active Substance: PARATHYROID HORMONE
     Indication: Hypoparathyroidism
     Dosage: 50 MICROGRAM, QD
     Route: 058
     Dates: start: 20170308
  2. PARATHYROID HORMONE [Suspect]
     Active Substance: PARATHYROID HORMONE
     Indication: Hypoparathyroidism
     Dosage: 50 MICROGRAM, QD
     Route: 058
     Dates: start: 20170308
  3. PARATHYROID HORMONE [Suspect]
     Active Substance: PARATHYROID HORMONE
     Indication: Hypoparathyroidism
     Dosage: 50 MICROGRAM, QD
     Route: 058
     Dates: start: 20170308

REACTIONS (11)
  - Muscle spasms [Unknown]
  - Paraesthesia [Unknown]
  - Scoliosis [Unknown]
  - Device issue [Recovered/Resolved with Sequelae]
  - Urinary tract infection [Unknown]
  - Extraskeletal ossification [Unknown]
  - Malaise [Unknown]
  - Gastrointestinal disorder [Unknown]
  - Blood calcium decreased [Recovered/Resolved]
  - Musculoskeletal discomfort [Unknown]
  - Hypoaesthesia oral [Unknown]

NARRATIVE: CASE EVENT DATE: 20240304
